FAERS Safety Report 4774648-9 (Version None)
Quarter: 2005Q3

REPORT INFORMATION
  Report Type: 
  Country: None (occurrence: None)
  Receive Date: 20050919
  Receipt Date: 20050906
  Transmission Date: 20060218
  Serious: Yes (Hospitalization, Other)
  Sender: FDA-Public Use
  Company Number: 2005125932

PATIENT
  Sex: Female

DRUGS (3)
  1. VFEND [Suspect]
     Indication: ASPERGILLOSIS
  2. VFEND [Suspect]
     Indication: CANDIDIASIS
  3. FLUCONAZOLE [Concomitant]

REACTIONS (6)
  - CANDIDIASIS [None]
  - DRUG EXPOSURE DURING PREGNANCY [None]
  - DRUG RESISTANCE [None]
  - HEPATIC FAILURE [None]
  - MICROSPORIDIA INFECTION [None]
  - RENAL FAILURE [None]
